FAERS Safety Report 7823067-7 (Version None)
Quarter: 2011Q4

REPORT INFORMATION
  Report Type: 
  Country: None (occurrence: None)
  Receive Date: 20111018
  Receipt Date: 20110105
  Transmission Date: 20120403
  Serious: No
  Sender: FDA-Public Use
  Company Number: US-ASTRAZENECA-2011SE00760

PATIENT
  Age: 18310 Day
  Sex: Female
  Weight: 86.2 kg

DRUGS (7)
  1. SYMBICORT [Suspect]
     Indication: ASTHMA
     Dosage: 160/4.5 UG TWICE A DAY
     Route: 055
     Dates: start: 20100801, end: 20110101
  2. BENADRYL [Concomitant]
     Indication: MULTIPLE ALLERGIES
  3. AMOXICILLIN [Concomitant]
     Indication: SINUSITIS
     Route: 048
  4. CEPHALEXIN [Concomitant]
     Indication: SINUSITIS
  5. CLARITIN [Concomitant]
     Indication: MULTIPLE ALLERGIES
     Route: 048
  6. PREDNISONE [Concomitant]
     Indication: SINUSITIS
     Route: 048
  7. MUCINEX [Concomitant]
     Indication: SINUSITIS
     Route: 048

REACTIONS (5)
  - DRUG DOSE OMISSION [None]
  - ASTHMA [None]
  - WHEEZING [None]
  - DYSPNOEA [None]
  - CHRONIC SINUSITIS [None]
